FAERS Safety Report 7268797-3 (Version None)
Quarter: 2011Q1

REPORT INFORMATION
  Report Type: 
  Country: None (occurrence: None)
  Receive Date: 20110201
  Receipt Date: 20110119
  Transmission Date: 20110831
  Serious: Yes (Other)
  Sender: FDA-Public Use
  Company Number: GB-MYLANLABS-2011S1001294

PATIENT
  Age: 78 Year
  Sex: Female
  Weight: 70 kg

DRUGS (12)
  1. PREDNISOLONE [Concomitant]
     Indication: PRODUCT USED FOR UNKNOWN INDICATION
     Dates: start: 20101206, end: 20101207
  2. AZATHIOPRINE [Suspect]
     Indication: PRODUCT USED FOR UNKNOWN INDICATION
     Dates: start: 20110101
  3. CALCIUM CARBONATE [Concomitant]
     Indication: PRODUCT USED FOR UNKNOWN INDICATION
     Dates: start: 20110110, end: 20110101
  4. PREDNISOLONE [Concomitant]
     Dates: start: 20101108, end: 20101109
  5. PREDNISOLONE [Concomitant]
     Dates: start: 20101220, end: 20100101
  6. PREDNISOLONE [Concomitant]
     Dates: start: 20101122, end: 20101123
  7. ALENDRONIC ACID [Concomitant]
     Indication: PRODUCT USED FOR UNKNOWN INDICATION
     Dates: start: 20110110, end: 20110101
  8. PREDNISOLONE [Concomitant]
     Dates: start: 20110110, end: 20110101
  9. ALENDRONIC ACID [Concomitant]
     Dates: start: 20101216, end: 20110113
  10. AZATHIOPRINE [Concomitant]
     Dates: start: 20110110, end: 20110101
  11. ERYTHROMYCIN [Concomitant]
     Indication: PRODUCT USED FOR UNKNOWN INDICATION
     Dates: start: 20101102, end: 20101109
  12. PREDNISOLONE [Concomitant]
     Dates: start: 20101210, end: 20101211

REACTIONS (1)
  - PURPURA [None]
